FAERS Safety Report 8422841-6 (Version None)
Quarter: 2012Q2

REPORT INFORMATION
  Report Type: 
  Country: None (occurrence: None)
  Receive Date: 20120608
  Receipt Date: 20120605
  Transmission Date: 20120825
  Serious: Yes (Hospitalization)
  Sender: FDA-Public Use
  Company Number: US-JNJFOC-20120602784

PATIENT
  Sex: Male

DRUGS (2)
  1. STELARA [Suspect]
     Indication: PSORIASIS
     Route: 058
     Dates: start: 20110228, end: 20120306
  2. METHOTREXATE [Concomitant]
     Route: 065
     Dates: end: 20120301

REACTIONS (1)
  - HEPATIC NEOPLASM MALIGNANT [None]
